FAERS Safety Report 17421193 (Version 1)
Quarter: 2020Q1

REPORT INFORMATION
  Report Type: Spontaneous
  Country: US (occurrence: US)
  Receive Date: 20200214
  Receipt Date: 20200214
  Transmission Date: 20200409
  Serious: No
  Sender: FDA-Public Use
  Company Number: US-JACOBUS PHARMACEUTICAL COMPANY, INC.-2080377

PATIENT
  Age: 82 Year
  Sex: Male

DRUGS (2)
  1. RUZURGI [Suspect]
     Active Substance: AMIFAMPRIDINE
     Indication: MYASTHENIC SYNDROME
  2. FIRDAPSE [Suspect]
     Active Substance: AMIFAMPRIDINE

REACTIONS (1)
  - Drug ineffective [Unknown]
